FAERS Safety Report 23789299 (Version 2)
Quarter: 2024Q4

REPORT INFORMATION
  Report Type: Spontaneous
  Country: US (occurrence: US)
  Receive Date: 20240426
  Receipt Date: 20241121
  Transmission Date: 20250115
  Serious: No
  Sender: PFIZER
  Company Number: US-PFIZER INC-202400093708

PATIENT
  Age: 76 Year
  Sex: Male

DRUGS (2)
  1. BRAFTOVI [Suspect]
     Active Substance: ENCORAFENIB
     Indication: Colon cancer
     Dosage: 300 MG, 1X/DAY (4 CAPSULES A DAY FOR A TOTAL OF 300 MG PER DAY)
     Route: 048
  2. DOXYCYCLINE HYCLATE [Concomitant]
     Active Substance: DOXYCYCLINE HYCLATE
     Indication: Infection
     Dosage: 100 MG, 1X/DAY (ONE 100 MG CAPSULE DAILY BY MOUTH AND IS STILL TAKING IT DAILY)
     Route: 048

REACTIONS (4)
  - Skin lesion [Not Recovered/Not Resolved]
  - Body height decreased [Unknown]
  - Paraesthesia [Unknown]
  - Rash [Not Recovered/Not Resolved]
